FAERS Safety Report 8127666-7 (Version None)
Quarter: 2012Q1

REPORT INFORMATION
  Report Type: 
  Country: None (occurrence: None)
  Receive Date: 20120210
  Receipt Date: 20120206
  Transmission Date: 20120608
  Serious: Yes (Hospitalization, Disabling, Other)
  Sender: FDA-Public Use
  Company Number: US-PFIZER INC-2011152611

PATIENT
  Sex: Female

DRUGS (1)
  1. CHANTIX [Suspect]
     Indication: SMOKING CESSATION THERAPY
     Dosage: UNK
     Route: 048
     Dates: start: 20060701, end: 20060901

REACTIONS (7)
  - INTENTIONAL OVERDOSE [None]
  - HALLUCINATION [None]
  - LOSS OF CONSCIOUSNESS [None]
  - ANXIETY [None]
  - SUICIDE ATTEMPT [None]
  - PARANOIA [None]
  - HALLUCINATION, AUDITORY [None]
